FAERS Safety Report 20459525 (Version 1)
Quarter: 2022Q1

REPORT INFORMATION
  Report Type: Spontaneous
  Country: CZ (occurrence: CZ)
  Receive Date: 20220211
  Receipt Date: 20220211
  Transmission Date: 20220423
  Serious: Yes (Other)
  Sender: FDA-Public Use
  Company Number: None

PATIENT
  Sex: Female

DRUGS (4)
  1. LETROZOLE [Suspect]
     Active Substance: LETROZOLE
     Indication: Hormone receptor positive HER2 negative breast cancer
     Dosage: 2.5 MILLIGRAM, QD
     Route: 065
     Dates: start: 201907
  2. RIBOCICLIB [Suspect]
     Active Substance: RIBOCICLIB
     Indication: Hormone receptor positive HER2 negative breast cancer
     Dosage: 600 MILLIGRAM, QD, 600 MILLIGRAM DAILY; 600 MG DAILY IN THE REGIMEN 3/1
     Route: 065
     Dates: start: 201907
  3. GOSERELIN [Suspect]
     Active Substance: GOSERELIN
     Indication: Breast cancer metastatic
     Dosage: 3.6 MILLIGRAM, MONTHLY, 3.6 MG SUBCUTANEOUSLY ONCE A MONTH
     Route: 058
     Dates: start: 201907
  4. BIOFENAC [Concomitant]
     Indication: Pain
     Dosage: UNK, PRN
     Route: 065

REACTIONS (3)
  - Neutropenia [Unknown]
  - Therapy partial responder [Unknown]
  - Leukopenia [Unknown]

NARRATIVE: CASE EVENT DATE: 20210401
